FAERS Safety Report 8192764-9 (Version None)
Quarter: 2012Q1

REPORT INFORMATION
  Report Type: 
  Country: None (occurrence: None)
  Receive Date: 20120308
  Receipt Date: 20120305
  Transmission Date: 20120608
  Serious: Yes (Other)
  Sender: FDA-Public Use
  Company Number: US-PFIZER INC-2012058824

PATIENT
  Sex: Female
  Weight: 79.82 kg

DRUGS (9)
  1. SAVELLA [Suspect]
     Indication: FIBROMYALGIA
     Dosage: UNK
  2. OXYCODONE [Concomitant]
     Indication: PAIN
     Dosage: 7.5 MG, AS NEEDED
  3. LYRICA [Suspect]
     Dosage: 300MG DAILY + 75MG AS NEEDED
  4. CYMBALTA [Suspect]
     Indication: FIBROMYALGIA
     Dosage: UNK
  5. LYRICA [Suspect]
     Indication: FIBROMYALGIA
     Dosage: 75 MG, 2X/DAY
  6. LYRICA [Suspect]
     Indication: NEUROPATHY PERIPHERAL
     Dosage: 150 MG, 2X/DAY
  7. LYRICA [Suspect]
     Dosage: UNK
  8. CYMBALTA [Suspect]
     Indication: NEUROPATHY PERIPHERAL
  9. SAVELLA [Suspect]
     Indication: NEUROPATHY PERIPHERAL

REACTIONS (6)
  - WITHDRAWAL SYNDROME [None]
  - DRUG INEFFECTIVE [None]
  - INFLUENZA [None]
  - PAIN [None]
  - WEIGHT DECREASED [None]
  - WEIGHT INCREASED [None]
